FAERS Safety Report 21107989 (Version 1)
Quarter: 2022Q3

REPORT INFORMATION
  Report Type: Spontaneous
  Country: US (occurrence: US)
  Receive Date: 20220720
  Receipt Date: 20220720
  Transmission Date: 20221027
  Serious: Yes (Other)
  Sender: FDA-Public Use
  Company Number: US-SA-SAC20220714001723

PATIENT
  Sex: Female
  Weight: 50.4 kg

DRUGS (2)
  1. KEVZARA [Suspect]
     Active Substance: SARILUMAB
     Indication: Rheumatoid arthritis
     Dosage: 150 MG QOW
     Route: 058
     Dates: start: 20200626, end: 20220616
  2. KEVZARA [Suspect]
     Active Substance: SARILUMAB
     Indication: Rheumatoid factor

REACTIONS (1)
  - Neutropenia [Not Recovered/Not Resolved]
